FAERS Safety Report 9619834 (Version 1)
Quarter: 2013Q4

REPORT INFORMATION
  Report Type: Spontaneous
  Country: DE (occurrence: DE)
  Receive Date: 20131014
  Receipt Date: 20131014
  Transmission Date: 20140711
  Serious: Yes (Death, Other)
  Sender: FDA-Public Use
  Company Number: DE-ROCHE-1288133

PATIENT
  Age: 88 Year
  Sex: Female

DRUGS (1)
  1. VISMODEGIB [Suspect]
     Indication: BASAL CELL CARCINOMA
     Route: 065

REACTIONS (4)
  - Cardiac disorder [Fatal]
  - Muscle spasms [Unknown]
  - Ageusia [Unknown]
  - Malignant neoplasm progression [Unknown]
